FAERS Safety Report 8226767-2 (Version None)
Quarter: 2012Q1

REPORT INFORMATION
  Report Type: 
  Country: None (occurrence: None)
  Receive Date: 20120322
  Receipt Date: 20120316
  Transmission Date: 20120608
  Serious: Yes (Other)
  Sender: FDA-Public Use
  Company Number: US-BAYER-2012-026753

PATIENT
  Age: 30 Year
  Sex: Female

DRUGS (13)
  1. GEODON [Concomitant]
     Dosage: 80 MG, BID
     Route: 048
  2. RESTORIL [Concomitant]
     Dosage: 15 MG, HS
     Route: 048
  3. LITHIUM CARBONATE [Concomitant]
     Dosage: 300 MG, MT
     Route: 048
  4. MIRAPEX [Concomitant]
     Dosage: 0.25 MG, UNK
     Route: 048
  5. LITHIUM CARBONATE [Concomitant]
     Dosage: 600 MG, HS
     Route: 048
  6. ALBUTEROL [Concomitant]
     Dosage: UNK UNK, PRN
     Route: 055
  7. YASMIN [Suspect]
  8. ZYPREXA [Concomitant]
     Dosage: 20 MG, HS
  9. KLONOPIN [Concomitant]
     Dosage: 0.5 MG, BID
     Route: 048
  10. RITALIN [Concomitant]
     Dosage: 5 - 10 MG
     Route: 048
  11. DEPAKOTE [Concomitant]
     Dosage: 1500 MG, HS
     Route: 048
  12. PROVIGIL [Concomitant]
     Dosage: 300 MG, UNK
     Route: 048
  13. SYNTHROID [Concomitant]
     Dosage: 0.1 MG, UNK
     Route: 048

REACTIONS (1)
  - DEEP VEIN THROMBOSIS [None]
